FAERS Safety Report 9966081 (Version 1)
Quarter: 2014Q1

REPORT INFORMATION
  Report Type: Spontaneous
  Country: US (occurrence: US)
  Receive Date: 20140305
  Receipt Date: 20140305
  Transmission Date: 20141002
  Serious: No
  Sender: FDA-Public Use
  Company Number: US-ABBVIE-13P-163-1124062-00

PATIENT
  Age: 51 Year
  Sex: Male
  Weight: 93.07 kg

DRUGS (3)
  1. HUMIRA [Suspect]
     Indication: PSORIASIS
     Dates: start: 2004, end: 201301
  2. HUMIRA [Suspect]
     Dates: start: 201301
  3. BUPROPION [Concomitant]
     Indication: DEPRESSION

REACTIONS (5)
  - Iritis [Not Recovered/Not Resolved]
  - Poor quality drug administered [Recovered/Resolved]
  - Pre-existing condition improved [Not Recovered/Not Resolved]
  - Injection site haemorrhage [Recovered/Resolved]
  - Inappropriate schedule of drug administration [Unknown]
